FAERS Safety Report 13552518 (Version 1)
Quarter: 2017Q2

REPORT INFORMATION
  Report Type: Spontaneous
  Country: AU (occurrence: AU)
  Receive Date: 20170517
  Receipt Date: 20170517
  Transmission Date: 20170830
  Serious: Yes (Death)
  Sender: FDA-Public Use
  Company Number: AU-BIOCOMPATIBLES UK LTD-2017BTG01260

PATIENT

DRUGS (2)
  1. DIGIFAB [Suspect]
     Active Substance: OVINE DIGOXIN IMMUNE FAB
     Indication: TOXICITY TO VARIOUS AGENTS
  2. DIGOXIN. [Concomitant]
     Active Substance: DIGOXIN
     Indication: PRODUCT USED FOR UNKNOWN INDICATION

REACTIONS (1)
  - Urosepsis [Fatal]
